FAERS Safety Report 15391136 (Version 1)
Quarter: 2018Q3

REPORT INFORMATION
  Report Type: Spontaneous
  Country: US (occurrence: US)
  Receive Date: 20180910
  Receipt Date: 20180910
  Transmission Date: 20181010
  Serious: Yes (Other)
  Sender: FDA-Public Use
  Company Number: None

PATIENT
  Age: 77 Year
  Sex: Female
  Weight: 83.25 kg

DRUGS (9)
  1. IRON [Concomitant]
     Active Substance: IRON
  2. DILTIAZEM. [Concomitant]
     Active Substance: DILTIAZEM
  3. MULTI VITAMIN [Concomitant]
     Active Substance: VITAMINS
  4. CAPECITABINE. [Suspect]
     Active Substance: CAPECITABINE
     Indication: COLON CANCER
     Route: 048
     Dates: start: 20180521, end: 20180910
  5. METOPROLOL. [Concomitant]
     Active Substance: METOPROLOL
  6. ASPIRIN 81 [Concomitant]
     Active Substance: ASPIRIN
  7. VITAMIN C [Concomitant]
     Active Substance: ASCORBIC ACID
  8. VITAMIN D3 [Concomitant]
     Active Substance: CHOLECALCIFEROL
  9. ATORVASTATIN [Concomitant]
     Active Substance: ATORVASTATIN

REACTIONS (2)
  - Intestinal ulcer [None]
  - Abdominal pain upper [None]

NARRATIVE: CASE EVENT DATE: 20180910
